FAERS Safety Report 6256095-6 (Version None)
Quarter: 2009Q2

REPORT INFORMATION
  Report Type: 
  Country: None (occurrence: None)
  Receive Date: 20090630
  Receipt Date: 20090630
  Transmission Date: 20091009
  Serious: Yes (Other)
  Sender: FDA-Public Use
  Company Number: None

PATIENT
  Age: 10 Year
  Sex: Male

DRUGS (2)
  1. GABITRIL [Suspect]
     Indication: BIPOLAR DISORDER
     Dosage: NIGHTLY PO
     Route: 048
     Dates: start: 20041005, end: 20041011
  2. SEROQUEL [Suspect]
     Indication: BIPOLAR DISORDER
     Dosage: NIGHTLY PO
     Route: 048
     Dates: start: 20040903, end: 20081015

REACTIONS (1)
  - CHROMATOPSIA [None]
